FAERS Safety Report 4573566-9 (Version None)
Quarter: 2005Q1

REPORT INFORMATION
  Report Type: 
  Country: None (occurrence: None)
  Receive Date: 20050208
  Receipt Date: 20040920
  Transmission Date: 20050727
  Serious: No
  Sender: FDA-Public Use
  Company Number: US-GLAXOSMITHKLINE-A0526419A

PATIENT
  Age: 59 Year
  Sex: Female

DRUGS (3)
  1. PAROXETINE HCL [Suspect]
     Indication: DEPRESSION
     Dosage: 20MG UNKNOWN
     Route: 048
  2. MULTIVITAMIN [Concomitant]
  3. HERBAL MEDICATION [Concomitant]

REACTIONS (3)
  - DEPRESSION [None]
  - INFLUENZA LIKE ILLNESS [None]
  - WEIGHT INCREASED [None]
